FAERS Safety Report 9571401 (Version 1)
Quarter: 2013Q1

REPORT INFORMATION
  Report Type: Spontaneous
  Country: US (occurrence: None)
  Receive Date: 20120525
  Receipt Date: 20120525
  Transmission Date: 20140127
  Serious: No
  Sender: FDA-Public Use
  Company Number: 348735

PATIENT
  Age: 65 Year
  Sex: Male

DRUGS (3)
  1. VICTOZA(LIRAGLUTIDE) SOLUTION FOR INJECTION, 6MG/ML [Suspect]
     Indication: TYPE 2 DIABETES MELLITUS
     Route: 058
  2. METFORMIN (METFORMIN) [Concomitant]
  3. GLIMEPIRIDE (GLIMEPIRIDE) [Concomitant]

REACTIONS (4)
  - Flatulence [None]
  - Abdominal discomfort [None]
  - Dyspepsia [None]
  - Diarrhoea [None]
